FAERS Safety Report 11909726 (Version 1)
Quarter: 2016Q1

REPORT INFORMATION
  Report Type: Spontaneous
  Country: US (occurrence: None)
  Receive Date: 20160111
  Receipt Date: 20160111
  Transmission Date: 20160526
  Serious: Yes (Other)
  Sender: FDA-Public Use
  Company Number: None

PATIENT
  Age: 72 Year
  Sex: Male
  Weight: 70.31 kg

DRUGS (6)
  1. MULTI-VITAMINS [Concomitant]
  2. ACIDOPHILUS [Concomitant]
     Active Substance: LACTOBACILLUS ACIDOPHILUS
  3. MELOXICAM. [Concomitant]
     Active Substance: MELOXICAM
  4. VALSARTAN/HYDROCHLOROTHIAZIDE [Suspect]
     Active Substance: HYDROCHLOROTHIAZIDE\VALSARTAN
     Indication: HYPERTENSION
     Route: 048
     Dates: start: 20150415, end: 20151222
  5. CARVEDILOL. [Concomitant]
     Active Substance: CARVEDILOL
  6. FISH OIL [Concomitant]
     Active Substance: FISH OIL

REACTIONS (7)
  - Peripheral swelling [None]
  - Skin exfoliation [None]
  - Arthralgia [None]
  - Documented hypersensitivity to administered product [None]
  - Pruritus [None]
  - Condition aggravated [None]
  - Reaction to drug excipients [None]

NARRATIVE: CASE EVENT DATE: 20151220
